FAERS Safety Report 17992721 (Version 2)
Quarter: 2020Q3

REPORT INFORMATION
  Report Type: Spontaneous
  Country: JP (occurrence: JP)
  Receive Date: 20200708
  Receipt Date: 20200724
  Transmission Date: 20201103
  Serious: Yes (Hospitalization)
  Sender: FDA-Public Use
  Company Number: JP-REGENERON PHARMACEUTICALS, INC.-2020-48431

PATIENT

DRUGS (7)
  1. EYLEA [Suspect]
     Active Substance: AFLIBERCEPT
     Dosage: 1 ML, ONCE (BOTH EYES)
     Route: 031
     Dates: start: 20191122, end: 20191122
  2. EYLEA [Suspect]
     Active Substance: AFLIBERCEPT
     Dosage: 1 ML, ONCE (BOTH EYES)
     Route: 031
     Dates: start: 20200323, end: 20200323
  3. INSULIN [Concomitant]
     Active Substance: INSULIN NOS
     Indication: PRODUCT USED FOR UNKNOWN INDICATION
  4. EYLEA [Suspect]
     Active Substance: AFLIBERCEPT
     Dosage: 1 ML, ONCE (BOTH EYES)
     Route: 031
     Dates: start: 20190410, end: 20190410
  5. EYLEA [Suspect]
     Active Substance: AFLIBERCEPT
     Indication: DIABETIC RETINAL OEDEMA
     Dosage: 0.05 ML, ONCE (RIGHT EYE)
     Route: 031
     Dates: start: 20181015, end: 20181015
  6. EYLEA [Suspect]
     Active Substance: AFLIBERCEPT
     Dosage: 1 ML, ONCE (BOTH EYES)
     Route: 031
     Dates: start: 20181226, end: 20181226
  7. EYLEA [Suspect]
     Active Substance: AFLIBERCEPT
     Dosage: 0.05 ML, ONCE (LEFT EYE)
     Route: 031
     Dates: start: 20181022, end: 20181022

REACTIONS (2)
  - Putamen haemorrhage [Recovered/Resolved with Sequelae]
  - Dyslalia [Unknown]

NARRATIVE: CASE EVENT DATE: 20200702
